FAERS Safety Report 25889936 (Version 1)
Quarter: 2025Q4

REPORT INFORMATION
  Report Type: Spontaneous
  Country: US (occurrence: None)
  Receive Date: 20251006
  Receipt Date: 20251006
  Transmission Date: 20260117
  Serious: No
  Sender: FDA-CTU
  Company Number: None

PATIENT
  Age: 39 Year
  Sex: Male

DRUGS (1)
  1. SKYRIZI [Suspect]
     Active Substance: RISANKIZUMAB-RZAA
     Indication: Crohn^s disease
     Dosage: 180MG/ML UNDER THE SKIN EVERY 8 WEEKS SUBCUTANEOUS
     Route: 058
     Dates: start: 20250724, end: 20250922

REACTIONS (1)
  - Colitis [None]

NARRATIVE: CASE EVENT DATE: 20250922
